FAERS Safety Report 15849596 (Version 1)
Quarter: 2019Q1

REPORT INFORMATION
  Report Type: Spontaneous
  Country: NL (occurrence: NL)
  Receive Date: 20190121
  Receipt Date: 20190121
  Transmission Date: 20190417
  Serious: Yes (Hospitalization)
  Sender: FDA-Public Use
  Company Number: NL-TEVA-2019-NL-1001721

PATIENT
  Age: 45 Year
  Sex: Male
  Weight: 87 kg

DRUGS (1)
  1. TERBINAFINE (TERBINAFINE) [Suspect]
     Active Substance: TERBINAFINE
     Indication: TINEA PEDIS
     Dosage: 250 MILLIGRAM DAILY; 1DD
     Dates: start: 20181109, end: 20181219

REACTIONS (1)
  - Pancreatitis [Recovered/Resolved]

NARRATIVE: CASE EVENT DATE: 20181214
